FAERS Safety Report 7822800-8 (Version None)
Quarter: 2011Q4

REPORT INFORMATION
  Report Type: 
  Country: None (occurrence: None)
  Receive Date: 20111018
  Receipt Date: 20110726
  Transmission Date: 20120403
  Serious: No
  Sender: FDA-Public Use
  Company Number: US-ASTRAZENECA-2011SE32873

PATIENT
  Age: 44 Year
  Sex: Male
  Weight: 68 kg

DRUGS (2)
  1. SPIRIVA [Concomitant]
  2. SYMBICORT [Suspect]
     Indication: CHRONIC OBSTRUCTIVE PULMONARY DISEASE
     Dosage: 160/4.5 2 PUFFS BID
     Route: 055
     Dates: start: 20110520, end: 20110527

REACTIONS (12)
  - FEELING HOT [None]
  - SINUS HEADACHE [None]
  - DYSPHAGIA [None]
  - EPISTAXIS [None]
  - CHOKING [None]
  - CHEST PAIN [None]
  - FLUSHING [None]
  - THROAT IRRITATION [None]
  - ORAL CANDIDIASIS [None]
  - ERYTHEMA [None]
  - DYSPHONIA [None]
  - TREMOR [None]
